FAERS Safety Report 17488611 (Version 1)
Quarter: 2020Q1

REPORT INFORMATION
  Report Type: Spontaneous
  Country: US (occurrence: US)
  Receive Date: 20200220
  Receipt Date: 20200220
  Transmission Date: 20200409
  Serious: Yes (Other)
  Sender: FDA-Public Use
  Company Number: None

PATIENT
  Age: 49 Year
  Sex: Female

DRUGS (8)
  1. CHANTIX [Concomitant]
     Active Substance: VARENICLINE TARTRATE
  2. BUPROPION. [Concomitant]
     Active Substance: BUPROPION
  3. LORATADINE. [Concomitant]
     Active Substance: LORATADINE
  4. AMBRISENTAN 10MG TABLETS 30/BO: 10MG [Suspect]
     Active Substance: AMBRISENTAN
     Indication: PULMONARY ARTERIAL HYPERTENSION
     Route: 048
     Dates: start: 201906, end: 202001
  5. TADALAFIL. [Concomitant]
     Active Substance: TADALAFIL
  6. LOSARTAN. [Concomitant]
     Active Substance: LOSARTAN
  7. NASACORT [Concomitant]
     Active Substance: TRIAMCINOLONE ACETONIDE
  8. IPRATROPIUM [Concomitant]
     Active Substance: IPRATROPIUM

REACTIONS (4)
  - Cough [None]
  - Nasal congestion [None]
  - Abdominal discomfort [None]
  - Product substitution issue [None]

NARRATIVE: CASE EVENT DATE: 20200121
